FAERS Safety Report 9053259 (Version 2)
Quarter: 2013Q2

REPORT INFORMATION
  Report Type: Spontaneous
  Country: BR (occurrence: BR)
  Receive Date: 20130207
  Receipt Date: 20130412
  Transmission Date: 20140414
  Serious: Yes (Other)
  Sender: FDA-Public Use
  Company Number: PHHY2013BR009762

PATIENT
  Age: 59 Year
  Sex: Male
  Weight: 91 kg

DRUGS (11)
  1. DIOVAN [Suspect]
  2. DIOVAN TRIPLE [Suspect]
     Dosage: 1 DF, (160 MG VALS, 10 MG AMLO, 12.5 MG HCTZ)
  3. DIOVAN HCT [Suspect]
     Indication: HYPERTENSION
     Dosage: 1 DF, (320 MG VALS/ 12,5 MG HYDRO) A DAY
     Route: 048
  4. LANTUS [Concomitant]
     Indication: DIABETES MELLITUS
     Dosage: 3 DF, A DAY
     Route: 058
  5. APIDRA [Concomitant]
     Indication: DIABETES MELLITUS
     Dosage: 3 DF, A DAY
     Route: 058
  6. NEBILET [Concomitant]
     Indication: HYPERTENSION
     Dosage: 2 DF, A DAY
     Route: 048
  7. GLIFAGE [Concomitant]
     Indication: DIABETES MELLITUS
     Dosage: 3 DF, A DAY
     Route: 048
  8. AAS [Concomitant]
     Indication: BLOOD DISORDER
     Dosage: 1 DF, A DAY
     Route: 048
  9. CELEBRA [Concomitant]
     Indication: BURSITIS
     Dosage: 1 DF, A DAY
     Route: 048
  10. ESPIRONOLACTONA [Concomitant]
     Indication: HYPERTENSION
     Dosage: 1 DF, A DAY
     Route: 048
  11. MUVINOR [Concomitant]
     Indication: FUNCTIONAL GASTROINTESTINAL DISORDER
     Dosage: 1 DF,  DAY
     Route: 048

REACTIONS (2)
  - Cerebrovascular accident [Recovering/Resolving]
  - Bursitis [Recovering/Resolving]
